FAERS Safety Report 7305485-9 (Version None)
Quarter: 2011Q1

REPORT INFORMATION
  Report Type: 
  Country: None (occurrence: None)
  Receive Date: 20110222
  Receipt Date: 20110210
  Transmission Date: 20110831
  Serious: Yes (Hospitalization)
  Sender: FDA-Public Use
  Company Number: DK-SANOFI-AVENTIS-2011SA009005

PATIENT
  Age: 71 Year
  Sex: Male

DRUGS (9)
  1. METOPROLOL TARTRATE [Concomitant]
  2. SIMVASTATIN [Concomitant]
  3. ALLOPURINOL [Concomitant]
  4. OMEPRAZOLE [Concomitant]
  5. FURIX [Concomitant]
  6. ACETYLSALICYLIC ACID [Concomitant]
  7. KALEORID [Concomitant]
  8. MULTAQ [Suspect]
     Route: 048
     Dates: start: 20101101, end: 20110130
  9. WARFARIN [Concomitant]

REACTIONS (2)
  - DYSPNOEA [None]
  - PERICARDIAL EFFUSION [None]
